FAERS Safety Report 7523194-8 (Version None)
Quarter: 2011Q2

REPORT INFORMATION
  Report Type: 
  Country: None (occurrence: None)
  Receive Date: 20110603
  Receipt Date: 20110524
  Transmission Date: 20111010
  Serious: Yes (Hospitalization)
  Sender: FDA-Public Use
  Company Number: US-ELI_LILLY_AND_COMPANY-US201105008697

PATIENT
  Sex: Female

DRUGS (5)
  1. HUMALOG [Suspect]
     Indication: DIABETES MELLITUS
     Dosage: UNK
  2. HUMALOG [Suspect]
     Dosage: UNK
  3. LORAZEPAM [Concomitant]
  4. CYMBALTA [Suspect]
     Indication: FIBROMYALGIA
     Dosage: 60 MG, QD
     Dates: start: 20110401, end: 20110508
  5. LANTUS [Concomitant]

REACTIONS (8)
  - BLOOD GLUCOSE FLUCTUATION [None]
  - INTENTIONAL OVERDOSE [None]
  - EUPHORIC MOOD [None]
  - SUICIDE ATTEMPT [None]
  - KIDNEY INFECTION [None]
  - THINKING ABNORMAL [None]
  - HUNGER [None]
  - SLEEP DISORDER [None]
